FAERS Safety Report 24451406 (Version 1)
Quarter: 2024Q4

REPORT INFORMATION
  Report Type: Spontaneous
  Country: IT (occurrence: IT)
  Receive Date: 20241017
  Receipt Date: 20241017
  Transmission Date: 20250114
  Serious: No
  Sender: SANDOZ
  Company Number: IT-SANDOZ-SDZ2024IT087727

PATIENT
  Age: 61 Year
  Sex: Male

DRUGS (1)
  1. OMNITROPE [Suspect]
     Active Substance: SOMATROPIN
     Indication: Product used for unknown indication
     Dosage: UNK
     Route: 058

REACTIONS (3)
  - Drug dose omission by device [Unknown]
  - Therapy cessation [Unknown]
  - Needle issue [Unknown]
